FAERS Safety Report 25703597 (Version 2)
Quarter: 2025Q4

REPORT INFORMATION
  Report Type: Spontaneous
  Country: US (occurrence: US)
  Receive Date: 20250820
  Receipt Date: 20251121
  Transmission Date: 20260117
  Serious: No
  Sender: VERASTEM
  Company Number: US-VERASTEM-2025-00240

PATIENT

DRUGS (1)
  1. AVMAPKI FAKZYNJA CO-PACK [Suspect]
     Active Substance: AVUTOMETINIB POTASSIUM\DEFACTINIB HYDROCHLORIDE
     Indication: Ovarian cancer
     Dosage: AS DIRECTED PER DOSING CARD
     Route: 048
     Dates: start: 20250619

REACTIONS (8)
  - Mood altered [Unknown]
  - Pain [Unknown]
  - Asthenia [Unknown]
  - Abdominal discomfort [Unknown]
  - Blood creatine phosphokinase increased [Unknown]
  - Diarrhoea [Unknown]
  - Erythema [Unknown]
  - Visual impairment [Unknown]
